FAERS Safety Report 25013471 (Version 4)
Quarter: 2025Q2

REPORT INFORMATION
  Report Type: Spontaneous
  Country: US (occurrence: US)
  Receive Date: 20250226
  Receipt Date: 20250425
  Transmission Date: 20250716
  Serious: Yes (Hospitalization, Other)
  Sender: SERVIER
  Company Number: US-SERVIER-S25001228

PATIENT

DRUGS (6)
  1. VORANIGO [Suspect]
     Active Substance: VORASIDENIB
     Indication: Astrocytoma, low grade
     Dosage: 40 MG, QD
     Route: 048
     Dates: start: 20241015, end: 20250109
  2. VORANIGO [Suspect]
     Active Substance: VORASIDENIB
     Dosage: 30 MG, QD
     Route: 048
     Dates: start: 20250110, end: 20250117
  3. LAMOTRIGINE [Concomitant]
     Active Substance: LAMOTRIGINE
     Indication: Seizure prophylaxis
     Dosage: 200 MG, BID
     Route: 048
     Dates: start: 20240911, end: 20250216
  4. KEPPRA [Concomitant]
     Active Substance: LEVETIRACETAM
     Indication: Seizure prophylaxis
     Dosage: 1500 MG, BID
     Route: 048
     Dates: start: 20240523
  5. ATIVAN [Concomitant]
     Active Substance: LORAZEPAM
     Indication: Seizure
     Route: 048
     Dates: start: 20240904
  6. ATIVAN [Concomitant]
     Active Substance: LORAZEPAM
     Indication: Anxiety

REACTIONS (6)
  - Hepatitis acute [Recovering/Resolving]
  - Drug-induced liver injury [Recovering/Resolving]
  - Hepatic necrosis [Recovering/Resolving]
  - Blood bilirubin increased [Recovering/Resolving]
  - Hepatic encephalopathy [Recovered/Resolved]
  - Hypertransaminasaemia [Recovering/Resolving]

NARRATIVE: CASE EVENT DATE: 20250109
